FAERS Safety Report 10730228 (Version 2)
Quarter: 2016Q1

REPORT INFORMATION
  Report Type: Report from Study
  Country: BR (occurrence: BR)
  Receive Date: 20150122
  Receipt Date: 20160330
  Transmission Date: 20160525
  Serious: Yes (Other)
  Sender: FDA-Public Use
  Company Number: BR-ABBVIE-15K-020-1334518-00

PATIENT
  Sex: Female
  Weight: 76 kg

DRUGS (2)
  1. LOSARTAN. [Concomitant]
     Active Substance: LOSARTAN
     Indication: BLOOD PRESSURE ABNORMAL
     Route: 048
  2. HUMIRA [Suspect]
     Active Substance: ADALIMUMAB
     Indication: RHEUMATOID ARTHRITIS
     Route: 058
     Dates: start: 20130331, end: 2014

REACTIONS (11)
  - Foot deformity [Recovering/Resolving]
  - Immunodeficiency [Recovered/Resolved]
  - Lower extremity mass [Unknown]
  - Varicose vein [Unknown]
  - Gait disturbance [Recovering/Resolving]
  - Peripheral swelling [Unknown]
  - Pain in extremity [Recovering/Resolving]
  - Skin discolouration [Unknown]
  - Cardiovascular disorder [Unknown]
  - Skin exfoliation [Recovered/Resolved]
  - Bone pain [Recovering/Resolving]

NARRATIVE: CASE EVENT DATE: 2014
